FAERS Safety Report 21484615 (Version 2)
Quarter: 2022Q4

REPORT INFORMATION
  Report Type: Spontaneous
  Country: DK (occurrence: DK)
  Receive Date: 20221020
  Receipt Date: 20221104
  Transmission Date: 20230113
  Serious: Yes (Hospitalization)
  Sender: FDA-Public Use
  Company Number: DK-TEVA-2022-DK-2817682

PATIENT
  Age: 24 Year
  Sex: Female

DRUGS (4)
  1. BUDESONIDE [Suspect]
     Active Substance: BUDESONIDE
     Indication: Asthma
     Dosage: 1400 MICROGRAM DAILY;
     Route: 055
  2. FLUTICASONE FUROATE [Suspect]
     Active Substance: FLUTICASONE FUROATE
     Indication: Sinusitis
     Dosage: 55 MICROGRAM DAILY;
     Route: 045
  3. MOMETASONE FUROATE [Suspect]
     Active Substance: MOMETASONE FUROATE
     Indication: Dermatitis
     Dosage: 3-7 TIMES/WEEK ON CHEST, HANDS AND NECK
     Route: 061
  4. ESTROGEN-CONTAINING CONTRACEPTION [Concomitant]
     Indication: Contraception
     Route: 048

REACTIONS (2)
  - Adrenal insufficiency [Not Recovered/Not Resolved]
  - Gait inability [Not Recovered/Not Resolved]
